FAERS Safety Report 16036353 (Version 4)
Quarter: 2019Q1

REPORT INFORMATION
  Report Type: Spontaneous
  Country: US (occurrence: US)
  Receive Date: 20190305
  Receipt Date: 20190314
  Transmission Date: 20190418
  Serious: Yes (Hospitalization, Other)
  Sender: FDA-Public Use
  Company Number: US-CELGENEUS-USA-20190208693

PATIENT
  Sex: Female

DRUGS (1)
  1. OTEZLA [Suspect]
     Active Substance: APREMILAST
     Indication: PSORIASIS
     Dosage: 60 MILLIGRAM
     Route: 048
     Dates: start: 20190122

REACTIONS (6)
  - Cough [Unknown]
  - Gastric disorder [Unknown]
  - Abdominal pain upper [Unknown]
  - Appendicitis [Unknown]
  - Headache [Unknown]
  - Diarrhoea [Unknown]
